FAERS Safety Report 16615313 (Version 1)
Quarter: 2019Q3

REPORT INFORMATION
  Report Type: Spontaneous
  Country: US (occurrence: US)
  Receive Date: 20190723
  Receipt Date: 20190723
  Transmission Date: 20191004
  Serious: No
  Sender: FDA-Public Use
  Company Number: US-ALLERGAN-1915968US

PATIENT
  Age: 72 Year
  Sex: Male

DRUGS (1)
  1. TRELSTAR [Suspect]
     Active Substance: TRIPTORELIN PAMOATE
     Indication: PROSTATE CANCER
     Dosage: 1 IN 6 MONTHS
     Route: 058
     Dates: start: 201901, end: 201901

REACTIONS (4)
  - Off label use [Unknown]
  - Incorrect route of product administration [Unknown]
  - Drug dose omission by device [Not Recovered/Not Resolved]
  - Device malfunction [Unknown]
